FAERS Safety Report 5824282-4 (Version None)
Quarter: 2008Q3

REPORT INFORMATION
  Report Type: 
  Country: None (occurrence: None)
  Receive Date: 20080728
  Receipt Date: 20080716
  Transmission Date: 20090109
  Serious: Yes (Other)
  Sender: FDA-Public Use
  Company Number: DE-ROCHE-576336

PATIENT
  Sex: Male

DRUGS (4)
  1. BONIVA [Suspect]
     Indication: DRUG USE FOR UNKNOWN INDICATION
     Route: 042
     Dates: end: 20080101
  2. ANALGETICA [Suspect]
     Indication: DRUG USE FOR UNKNOWN INDICATION
     Dosage: DRUG NAME:ANALGETICS (NOS)
     Route: 065
     Dates: end: 20080101
  3. NOVAMINSULFON [Suspect]
     Indication: DRUG USE FOR UNKNOWN INDICATION
     Route: 065
     Dates: end: 20080101
  4. ACE INHIBITOR [Concomitant]
     Dosage: DRUG NAME: ACE BLOCKERS (NOS)
     Dates: end: 20080101

REACTIONS (1)
  - HEPATITIS [None]
